FAERS Safety Report 23569354 (Version 1)
Quarter: 2024Q1

REPORT INFORMATION
  Report Type: Spontaneous
  Country: US (occurrence: US)
  Receive Date: 20240227
  Receipt Date: 20240227
  Transmission Date: 20240409
  Serious: No
  Sender: FDA-Public Use
  Company Number: US-AMNEAL PHARMACEUTICALS-2023-AMRX-01265

PATIENT
  Sex: Male
  Weight: 81.633 kg

DRUGS (2)
  1. ABIRATERONE ACETATE [Suspect]
     Active Substance: ABIRATERONE ACETATE
     Indication: Cancer pain
     Dosage: 2000MG PER DAY
     Route: 065
     Dates: start: 2020, end: 202302
  2. PREDNISONE [Concomitant]
     Active Substance: PREDNISONE
     Indication: Hypertension
     Route: 065

REACTIONS (2)
  - Pain [Unknown]
  - Product dose omission issue [Unknown]
